FAERS Safety Report 12348836 (Version 1)
Quarter: 2016Q2

REPORT INFORMATION
  Report Type: Spontaneous
  Country: IT (occurrence: IT)
  Receive Date: 20160509
  Receipt Date: 20160509
  Transmission Date: 20160815
  Serious: Yes (Other)
  Sender: FDA-Public Use
  Company Number: IT-HQ SPECIALTY-IT-2016INT000261

PATIENT

DRUGS (1)
  1. CISPLATIN. [Suspect]
     Active Substance: CISPLATIN
     Indication: CERVIX CARCINOMA
     Dosage: 40 MG/SQM, STARTING ON DAY 1 OF RT
     Dates: start: 200105

REACTIONS (1)
  - Gastrointestinal toxicity [Unknown]
